FAERS Safety Report 6268747-2 (Version None)
Quarter: 2009Q3

REPORT INFORMATION
  Report Type: 
  Country: None (occurrence: None)
  Receive Date: 20090715
  Receipt Date: 20090701
  Transmission Date: 20100115
  Serious: Yes (Hospitalization)
  Sender: FDA-Public Use
  Company Number: US-JNJCH-2009019067

PATIENT
  Sex: Female

DRUGS (21)
  1. CETIRIZINE HYDROCHLORIDE [Suspect]
     Indication: PRURITUS
     Dosage: TEXT:10 MG
     Route: 065
  2. HYDROXYZINE [Suspect]
     Indication: DRUG USE FOR UNKNOWN INDICATION
     Dosage: TEXT:25 MG
     Route: 065
  3. CAPTOPRIL [Suspect]
     Indication: DRUG USE FOR UNKNOWN INDICATION
     Dosage: TEXT:150 MG
     Route: 065
  4. PREGABALIN [Suspect]
     Indication: NEUROPATHY PERIPHERAL
     Dosage: TEXT:450 MG
     Route: 065
  5. ATORVASTATIN CALCIUM [Suspect]
     Indication: BLOOD CHOLESTEROL INCREASED
     Dosage: TEXT:20 MG
     Route: 065
  6. LOMOTIL [Suspect]
     Indication: DIARRHOEA
     Dosage: TEXT:UNKNOWN
     Route: 065
  7. HYDROMORPHONE HYDROCHLORIDE [Suspect]
     Indication: PAIN
     Dosage: TEXT:UNKNOWN
     Route: 065
  8. CLOPIDOGREL [Suspect]
     Indication: CEREBROVASCULAR ACCIDENT
     Dosage: TEXT:75 MG
     Route: 065
  9. CALCIUM WITH VITAMIN D [Concomitant]
     Indication: DRUG USE FOR UNKNOWN INDICATION
     Dosage: TEXT:UNKNOWN
     Route: 065
  10. INSULIN GLARGINE [Concomitant]
     Indication: DRUG USE FOR UNKNOWN INDICATION
     Dosage: TEXT:UNKNOWN
     Route: 065
  11. INSULIN [Concomitant]
     Indication: DRUG USE FOR UNKNOWN INDICATION
     Dosage: TEXT:UNKNOWN
     Route: 065
  12. METOPROLOL TARTRATE [Concomitant]
     Indication: DRUG USE FOR UNKNOWN INDICATION
     Dosage: TEXT:100 MG
     Route: 065
  13. GLYCERYL TRINITRATE [Concomitant]
     Indication: DRUG USE FOR UNKNOWN INDICATION
     Dosage: TEXT:0.4 MG PRN
     Route: 065
  14. RANITIDINE HYDROCHLORIDE [Concomitant]
     Indication: DRUG USE FOR UNKNOWN INDICATION
     Dosage: TEXT:300 MG
     Route: 065
  15. SITAGLIPTIN PHOSPHATE [Concomitant]
     Indication: DRUG USE FOR UNKNOWN INDICATION
     Dosage: TEXT:100 MG
     Route: 065
  16. OMEPRAZOLE [Concomitant]
     Indication: DRUG USE FOR UNKNOWN INDICATION
     Dosage: TEXT:20 MG
     Route: 065
  17. INSULIN LISPRO [Concomitant]
     Indication: DRUG USE FOR UNKNOWN INDICATION
     Dosage: TEXT:UNKNOWN
     Route: 065
  18. CORTICOSTEROIDS [Concomitant]
     Indication: DRUG USE FOR UNKNOWN INDICATION
     Dosage: TEXT:40 MG
     Route: 048
     Dates: start: 20090101, end: 20090101
  19. CORTICOSTEROIDS [Concomitant]
     Dosage: TEXT:30 MG
     Route: 048
     Dates: start: 20090101, end: 20090101
  20. CORTICOSTEROIDS [Concomitant]
     Dosage: TEXT:20 MG
     Route: 048
     Dates: start: 20090101, end: 20090101
  21. CORTICOSTEROIDS [Concomitant]
     Dosage: TEXT:10 MG
     Route: 048
     Dates: start: 20090101, end: 20090101

REACTIONS (17)
  - BLISTER [None]
  - BLOOD GLUCOSE INCREASED [None]
  - BLOOD PRESSURE INCREASED [None]
  - CELLULITIS [None]
  - CEREBROVASCULAR ACCIDENT [None]
  - DIARRHOEA [None]
  - DRUG INEFFECTIVE [None]
  - FACIAL PALSY [None]
  - FEELING ABNORMAL [None]
  - HEADACHE [None]
  - HYPOTHYROIDISM [None]
  - NEUROPATHY PERIPHERAL [None]
  - RASH PRURITIC [None]
  - SKIN DISCOLOURATION [None]
  - SURGERY [None]
  - TRANSIENT ISCHAEMIC ATTACK [None]
  - WEIGHT INCREASED [None]
